FAERS Safety Report 16072762 (Version 1)
Quarter: 2019Q1

REPORT INFORMATION
  Report Type: Spontaneous
  Country: US (occurrence: US)
  Receive Date: 20190314
  Receipt Date: 20190314
  Transmission Date: 20190418
  Serious: Yes (Death)
  Sender: FDA-Public Use
  Company Number: US-EMERGENT BIOSOLUTIONS CANADA INC.-17BA00027SP

PATIENT
  Sex: Male
  Weight: 63.5 kg

DRUGS (2)
  1. BAT [Suspect]
     Active Substance: EQUINE BOTULINUM NEUROTOXIN A/B/C/D/E/F/G IMMUNE FAB2
     Dosage: 198 ML, SINGLE
     Dates: start: 20170413, end: 20170414
  2. SOLU-MEDROL [Concomitant]
     Active Substance: METHYLPREDNISOLONE SODIUM SUCCINATE
     Dosage: 60 MG, Q8H
     Route: 042
     Dates: start: 20170413, end: 20170414

REACTIONS (1)
  - Coma [Fatal]
